FAERS Safety Report 14479289 (Version 1)
Quarter: 2018Q1

REPORT INFORMATION
  Report Type: Spontaneous
  Country: US (occurrence: US)
  Receive Date: 20180202
  Receipt Date: 20180202
  Transmission Date: 20180509
  Serious: No
  Sender: FDA-Public Use
  Company Number: US-JNJFOC-20180117455

PATIENT
  Sex: Male

DRUGS (9)
  1. ECOTRIN [Concomitant]
     Active Substance: ASPIRIN
     Dosage: WITH BREAKFAST
     Route: 048
  2. CIALIS [Concomitant]
     Active Substance: TADALAFIL
     Route: 048
  3. INVOKANA [Suspect]
     Active Substance: CANAGLIFLOZIN
     Indication: PRODUCT USED FOR UNKNOWN INDICATION
     Route: 065
  4. NORCO [Concomitant]
     Active Substance: ACETAMINOPHEN\HYDROCODONE BITARTRATE
     Indication: PAIN
     Dosage: DOSE: 7.5-325 MG/TABLET
     Route: 048
  5. NORVASC [Concomitant]
     Active Substance: AMLODIPINE BESYLATE
     Route: 048
  6. JANUMET [Concomitant]
     Active Substance: METFORMIN HYDROCHLORIDE\SITAGLIPTIN PHOSPHATE
     Dosage: DOSE: 50-1000MG
     Route: 048
  7. GLUCOTROL [Concomitant]
     Active Substance: GLIPIZIDE
     Route: 048
  8. PRINIVIL [Concomitant]
     Active Substance: LISINOPRIL
     Route: 048
  9. TRULICITY [Concomitant]
     Active Substance: DULAGLUTIDE
     Dosage: DOSE: 0.75MG/0.5ML
     Route: 058

REACTIONS (1)
  - Adverse event [Unknown]
